FAERS Safety Report 26076985 (Version 1)
Quarter: 2025Q4

REPORT INFORMATION
  Report Type: Spontaneous
  Country: EU (occurrence: EU)
  Receive Date: 20251121
  Receipt Date: 20251121
  Transmission Date: 20260117
  Serious: Yes (Other)
  Sender: B. BRAUN MEDICAL INC.
  Company Number: EU-BBM-DE-BBM-202504361

PATIENT
  Age: 76 Year
  Sex: Male
  Weight: 96 kg

DRUGS (2)
  1. HEPARIN [Suspect]
     Active Substance: HEPARIN SODIUM
     Indication: Percutaneous coronary intervention
     Dosage: 17,500 IU WAS ADMINISTERED I.A. AND I.V.?DOSAGE 17,500 IU, DURATION OF USE FROM 9:13 A.M. TO 10:20 A.M. ON NOVEMBER 10, 2025
     Dates: start: 20251110, end: 20251110
  2. AGGRASTAT [Suspect]
     Active Substance: TIROFIBAN HYDROCHLORIDE
     Dosage: 1X DURING SURGERY

REACTIONS (3)
  - Coronary artery thrombosis [Unknown]
  - Off label use [Unknown]
  - Drug ineffective [Unknown]

NARRATIVE: CASE EVENT DATE: 20251110
